FAERS Safety Report 7313364-6 (Version None)
Quarter: 2011Q1

REPORT INFORMATION
  Report Type: 
  Country: None (occurrence: None)
  Receive Date: 20110215
  Receipt Date: 20110215
  Transmission Date: 20110831
  Serious: Yes (Hospitalization)
  Sender: FDA-Public Use
  Company Number: None

PATIENT
  Age: 55 Year
  Sex: Male
  Weight: 63.05 kg

DRUGS (2)
  1. CISPLATIN [Suspect]
     Dosage: 53 MG WEEKLY IV DRIP
     Route: 041
     Dates: start: 20110117, end: 20110207
  2. CETUXIMAB UNKNOWN UNKNOWN [Suspect]
     Indication: HEAD AND NECK CANCER
     Dosage: 440 MG WEEKLY IV DRIP
     Route: 041
     Dates: start: 20110111, end: 20110207

REACTIONS (4)
  - DIARRHOEA [None]
  - NAUSEA [None]
  - MALNUTRITION [None]
  - ASTHENIA [None]
